FAERS Safety Report 6903539-X (Version None)
Quarter: 2010Q3

REPORT INFORMATION
  Report Type: 
  Country: None (occurrence: None)
  Receive Date: 20100803
  Receipt Date: 20081021
  Transmission Date: 20110219
  Serious: No
  Sender: FDA-Public Use
  Company Number: US-PFIZER INC-2008088869

PATIENT
  Sex: Female
  Weight: 74.84 kg

DRUGS (3)
  1. LYRICA [Suspect]
     Indication: TENDONITIS
     Route: 048
     Dates: start: 20080807, end: 20080828
  2. LYRICA [Suspect]
     Indication: TENOSYNOVITIS
  3. NEURONTIN [Concomitant]

REACTIONS (6)
  - DRY MOUTH [None]
  - DRY SKIN [None]
  - FIBROMYALGIA [None]
  - HEART RATE INCREASED [None]
  - INSOMNIA [None]
  - TREMOR [None]
